FAERS Safety Report 16188282 (Version 1)
Quarter: 2019Q2

REPORT INFORMATION
  Report Type: Spontaneous
  Country: FR (occurrence: FR)
  Receive Date: 20190412
  Receipt Date: 20190412
  Transmission Date: 20190711
  Serious: Yes (Death, Life-Threatening, Hospitalization, Other)
  Sender: FDA-Public Use
  Company Number: FR-BEH-2011030436

PATIENT
  Age: 75 Year
  Sex: Male
  Weight: 82 kg

DRUGS (13)
  1. PRIVIGEN [Suspect]
     Active Substance: HUMAN IMMUNOGLOBULIN G
     Dosage: 20 G, QD
     Route: 042
     Dates: start: 20111103, end: 20111103
  2. GLUCOR [Concomitant]
     Active Substance: ACARBOSE
  3. PRIVIGEN [Suspect]
     Active Substance: HUMAN IMMUNOGLOBULIN G
     Indication: HUMORAL IMMUNE DEFECT
     Dosage: 5 G, QD
     Route: 042
     Dates: start: 20111103, end: 20111103
  4. ZYLORIC [Concomitant]
     Active Substance: ALLOPURINOL
  5. ATACAND [Concomitant]
     Active Substance: CANDESARTAN CILEXETIL
  6. PRIVIGEN [Suspect]
     Active Substance: HUMAN IMMUNOGLOBULIN G
     Dosage: 25 G, QMT
     Route: 042
     Dates: start: 201109
  7. FUMAFER [Concomitant]
     Active Substance: FERROUS FUMARATE
  8. ISOPTINE [Concomitant]
     Active Substance: VERAPAMIL HYDROCHLORIDE
  9. LASILIX [Concomitant]
     Active Substance: FUROSEMIDE
  10. SYMBICORT [Concomitant]
     Active Substance: BUDESONIDE\FORMOTEROL FUMARATE DIHYDRATE
  11. COLCHIMAX (COLCHICINE\OPIUM\TIEMONIUM METHYLSULFATE) [Concomitant]
     Active Substance: COLCHICINE\OPIUM\TIEMONIUM METHYLSULFATE
     Indication: GOUT
  12. SINTROM [Concomitant]
     Active Substance: ACENOCOUMAROL
  13. CORDARONE [Concomitant]
     Active Substance: AMIODARONE HYDROCHLORIDE

REACTIONS (7)
  - Aortic bruit [Unknown]
  - Extensor plantar response [Unknown]
  - Cyanosis [Unknown]
  - Livedo reticularis [Unknown]
  - Cardio-respiratory arrest [Fatal]
  - Heart sounds abnormal [Unknown]
  - Mitral valve incompetence [Unknown]

NARRATIVE: CASE EVENT DATE: 20111103
